FAERS Safety Report 6050428-1 (Version None)
Quarter: 2009Q1

REPORT INFORMATION
  Report Type: 
  Country: None (occurrence: None)
  Receive Date: 20090116
  Receipt Date: 20090116
  Transmission Date: 20090719
  Serious: Yes (Other)
  Sender: FDA-Public Use
  Company Number: None

PATIENT
  Age: 59 Year
  Sex: Female
  Weight: 56.6996 kg

DRUGS (1)
  1. K-Y BRAND  LIQUIBEADS LONG LASTING VAGINAL MOISTURE [Suspect]
     Dosage: 1 OVULE INSERT 1 PER 1 TO 4 D VAGINAL
     Route: 067
     Dates: start: 20080718

REACTIONS (2)
  - INFECTION [None]
  - URGE INCONTINENCE [None]
